FAERS Safety Report 18095833 (Version 8)
Quarter: 2020Q4

REPORT INFORMATION
  Report Type: Report from Study
  Country: DE (occurrence: DE)
  Receive Date: 20200730
  Receipt Date: 20201210
  Transmission Date: 20210113
  Serious: Yes (Hospitalization, Other)
  Sender: FDA-Public Use
  Company Number: DE-BRISTOL-MYERS SQUIBB COMPANY-BMS-2020-060991

PATIENT
  Age: 57 Year
  Sex: Male

DRUGS (10)
  1. DEXAMETHASONE. [Concomitant]
     Active Substance: DEXAMETHASONE
     Indication: PRODUCT USED FOR UNKNOWN INDICATION
     Route: 065
  2. IPILIMUMAB [Suspect]
     Active Substance: IPILIMUMAB
     Indication: MALIGNANT MELANOMA
     Dosage: 285 MILLIGRAM
     Route: 065
     Dates: start: 20191009, end: 20191227
  3. IPILIMUMAB [Suspect]
     Active Substance: IPILIMUMAB
     Dosage: 255 MILLIGRAM
     Dates: start: 20191227
  4. NIVOLUMAB [Suspect]
     Active Substance: NIVOLUMAB
     Dosage: 85 MILLIGRAM
     Dates: start: 20191227
  5. IPILIMUMAB [Suspect]
     Active Substance: IPILIMUMAB
     Dosage: 240 MILLIGRAM
     Dates: start: 20191104
  6. IPILIMUMAB [Suspect]
     Active Substance: IPILIMUMAB
     Dosage: 255 MILLIGRAM
     Dates: start: 20191206
  7. NIVOLUMAB [Suspect]
     Active Substance: NIVOLUMAB
     Dosage: 80 MILLIGRAM
     Route: 065
     Dates: start: 20191104
  8. NIVOLUMAB [Suspect]
     Active Substance: NIVOLUMAB
     Dosage: 85 MILLIGRAM
     Route: 065
     Dates: start: 20191206
  9. NIVOLUMAB [Suspect]
     Active Substance: NIVOLUMAB
     Dosage: 240 MILLIGRAM, Q2WK
     Route: 042
     Dates: start: 20200429, end: 20200708
  10. NIVOLUMAB [Suspect]
     Active Substance: NIVOLUMAB
     Indication: MALIGNANT MELANOMA
     Dosage: 95 MILLIGRAM
     Route: 065
     Dates: start: 20191009

REACTIONS (1)
  - Ulcerative keratitis [Not Recovered/Not Resolved]

NARRATIVE: CASE EVENT DATE: 20200728
